FAERS Safety Report 9940578 (Version 1)
Quarter: 2014Q1

REPORT INFORMATION
  Report Type: Spontaneous
  Country: US (occurrence: US)
  Receive Date: 20140303
  Receipt Date: 20140303
  Transmission Date: 20141002
  Serious: No
  Sender: FDA-Public Use
  Company Number: US-PFIZER INC-2014060127

PATIENT
  Age: 68 Year
  Sex: Male
  Weight: 68.03 kg

DRUGS (1)
  1. LIPITOR [Suspect]
     Indication: BLOOD CHOLESTEROL INCREASED
     Dosage: 20 MG, ONCE A DAY
     Route: 048

REACTIONS (3)
  - Myalgia [Unknown]
  - Muscular weakness [Unknown]
  - Alopecia [Unknown]
